FAERS Safety Report 6257873-X (Version None)
Quarter: 2009Q3

REPORT INFORMATION
  Report Type: 
  Country: None (occurrence: None)
  Receive Date: 20090701
  Receipt Date: 20090701
  Transmission Date: 20100115
  Serious: No
  Sender: FDA-Public Use
  Company Number: None

PATIENT

DRUGS (2)
  1. ADENOSCAN [Suspect]
     Dosage: 23.6MG, 14.4MG; ONCE; IV
     Route: 042
     Dates: start: 20090623, end: 20090623
  2. ADENOSCAN [Suspect]
     Dosage: 21.4MG; ONCE; IV
     Route: 042
     Dates: start: 20090629, end: 20090629

REACTIONS (1)
  - DRUG INEFFECTIVE [None]
